FAERS Safety Report 10069375 (Version 2)
Quarter: 2014Q2

REPORT INFORMATION
  Report Type: Spontaneous
  Country: CA (occurrence: CA)
  Receive Date: 20140410
  Receipt Date: 20140416
  Transmission Date: 20141212
  Serious: No
  Sender: FDA-Public Use
  Company Number: CA-ROCHE-1378648

PATIENT
  Sex: Male

DRUGS (6)
  1. RITUXAN [Suspect]
     Indication: WALDENSTROM^S MACROGLOBULINAEMIA
     Dosage: WEEKLY X 4 DOSES
     Route: 042
     Dates: start: 200511
  2. RITUXAN [Suspect]
     Dosage: WEEKLY X 4 DOSES
     Route: 042
     Dates: start: 201009
  3. RITUXAN [Suspect]
     Dosage: DAY 1
     Route: 042
     Dates: start: 201310
  4. BENDAMUSTINE [Suspect]
     Indication: WALDENSTROM^S MACROGLOBULINAEMIA
     Route: 065
  5. HYDROCHLOROTHIAZIDE [Concomitant]
  6. TRAVOPROST [Concomitant]
     Route: 065

REACTIONS (3)
  - Heart sounds abnormal [Unknown]
  - Burning sensation [Unknown]
  - Off label use [Unknown]
